FAERS Safety Report 5925496-5 (Version None)
Quarter: 2008Q4

REPORT INFORMATION
  Report Type: 
  Country: None (occurrence: None)
  Receive Date: 20081021
  Receipt Date: 20081013
  Transmission Date: 20090506
  Serious: Yes (Other)
  Sender: FDA-Public Use
  Company Number: FR-ROCHE-589842

PATIENT
  Age: 43 Year
  Sex: Male

DRUGS (1)
  1. RIVOTRIL [Suspect]
     Indication: DRUG USE FOR UNKNOWN INDICATION
     Route: 065
     Dates: start: 20080301, end: 20080701

REACTIONS (4)
  - ANOREXIA [None]
  - DYSGEUSIA [None]
  - PANCREATITIS [None]
  - WEIGHT DECREASED [None]
